FAERS Safety Report 10254854 (Version 1)
Quarter: 2014Q2

REPORT INFORMATION
  Report Type: Other
  Country: CN (occurrence: CN)
  Receive Date: 20140624
  Receipt Date: 20140624
  Transmission Date: 20141212
  Serious: Yes (Other)
  Sender: FDA-Public Use
  Company Number: CN-NAPPMUNDI-GBR-2014-0018774

PATIENT
  Age: 80 Year
  Sex: Female

DRUGS (4)
  1. OXYCONTIN TABLETS [Suspect]
     Indication: CANCER PAIN
     Dosage: 70 MG, Q12H
     Route: 048
  2. OXYCONTIN TABLETS [Suspect]
     Dosage: 10 MG, Q12H
     Route: 048
  3. MORPHINE SULFATE [Concomitant]
     Indication: CANCER PAIN
     Route: 042
  4. GEMCITABINE [Concomitant]
     Indication: CHEMOTHERAPY

REACTIONS (1)
  - Delirium [Unknown]
